FAERS Safety Report 6358626-4 (Version None)
Quarter: 2009Q3

REPORT INFORMATION
  Report Type: 
  Country: None (occurrence: None)
  Receive Date: 20090914
  Receipt Date: 20090901
  Transmission Date: 20100115
  Serious: Yes (Death)
  Sender: FDA-Public Use
  Company Number: 2009AL002608

PATIENT
  Sex: Male

DRUGS (13)
  1. DIGOXIN [Suspect]
     Dosage: PO
     Route: 048
  2. DIGOXIN [Suspect]
     Dosage: 0.25 MG. DAILY
  3. WELLBUTRIN SR [Concomitant]
  4. NICOTINE [Concomitant]
  5. ENALAPRIL MALEATE [Concomitant]
  6. DOXEPIN HCL [Concomitant]
  7. PREDNISONE [Concomitant]
  8. LEXAPRO [Concomitant]
  9. XANAX [Concomitant]
  10. OXYCODONE [Concomitant]
  11. HYDROCODONE [Concomitant]
  12. SOMA [Concomitant]
  13. HUMULIN 70/30 [Concomitant]

REACTIONS (13)
  - ALANINE AMINOTRANSFERASE INCREASED [None]
  - BRAIN NATRIURETIC PEPTIDE INCREASED [None]
  - CORONARY ARTERY DISEASE [None]
  - DIABETES MELLITUS [None]
  - DIABETES MELLITUS INADEQUATE CONTROL [None]
  - ECONOMIC PROBLEM [None]
  - EMOTIONAL DISORDER [None]
  - HYPOAESTHESIA ORAL [None]
  - INJURY [None]
  - ISCHAEMIC CARDIOMYOPATHY [None]
  - MYOCARDIAL INFARCTION [None]
  - PRESYNCOPE [None]
  - SURGERY [None]
